FAERS Safety Report 11137921 (Version 1)
Quarter: 2015Q2

REPORT INFORMATION
  Report Type: Spontaneous
  Country: US (occurrence: US)
  Receive Date: 20150526
  Receipt Date: 20150526
  Transmission Date: 20150821
  Serious: No
  Sender: FDA-Public Use
  Company Number: US-MALLINCKRODT-T201404495

PATIENT
  Age: 24 Year
  Sex: Male

DRUGS (1)
  1. H.P. ACTHAR [Suspect]
     Active Substance: CORTICOTROPIN
     Indication: GLOMERULONEPHRITIS MEMBRANOUS
     Dosage: 80 UNITS BIWEEKLY
     Route: 065
     Dates: start: 20141127

REACTIONS (3)
  - Gastrointestinal sounds abnormal [Unknown]
  - Energy increased [Unknown]
  - Weight decreased [Unknown]

NARRATIVE: CASE EVENT DATE: 201411
